FAERS Safety Report 6238544-2 (Version None)
Quarter: 2009Q2

REPORT INFORMATION
  Report Type: 
  Country: None (occurrence: None)
  Receive Date: 20090617
  Receipt Date: 20080320
  Transmission Date: 20091009
  Serious: No
  Sender: FDA-Public Use
  Company Number: 273328

PATIENT
  Age: 69 Year
  Sex: Female

DRUGS (2)
  1. LEVEMIR [Suspect]
     Indication: INSULIN-REQUIRING TYPE 2 DIABETES MELLITUS
     Dosage: 14 IU, SUBCUTANEOUS
     Route: 058
  2. BYETTA (EXENATIDE, EXENATIDE) [Concomitant]

REACTIONS (2)
  - HYPOGLYCAEMIA [None]
  - MALAISE [None]
